FAERS Safety Report 25994187 (Version 2)
Quarter: 2025Q4

REPORT INFORMATION
  Report Type: Spontaneous
  Country: US (occurrence: None)
  Receive Date: 20251104
  Receipt Date: 20251215
  Transmission Date: 20260118
  Serious: No
  Sender: UCB
  Company Number: US-UCBSA-2025050190

PATIENT
  Age: 58 Year
  Weight: 66.22 kg

DRUGS (2)
  1. BIMZELX [Suspect]
     Active Substance: BIMEKIZUMAB-BKZX
     Indication: Psoriasis
     Dosage: 320 MILLIGRAM, EV 4 WEEKS
  2. LOSARTAN [Concomitant]
     Active Substance: LOSARTAN
     Indication: Hypertension
     Dosage: 50 MILLIGRAM, ONCE DAILY (QD)

REACTIONS (10)
  - Gastritis [Not Recovered/Not Resolved]
  - Tenderness [Not Recovered/Not Resolved]
  - Gastrooesophageal reflux disease [Not Recovered/Not Resolved]
  - Faeces discoloured [Unknown]
  - Abdominal pain upper [Unknown]
  - Fall [Unknown]
  - Rash [Not Recovered/Not Resolved]
  - Skin disorder [Not Recovered/Not Resolved]
  - Pruritus [Not Recovered/Not Resolved]
  - Product dose omission issue [Unknown]
